FAERS Safety Report 7445853-8 (Version None)
Quarter: 2011Q2

REPORT INFORMATION
  Report Type: 
  Country: None (occurrence: None)
  Receive Date: 20110429
  Receipt Date: 20110426
  Transmission Date: 20111010
  Serious: No
  Sender: FDA-Public Use
  Company Number: US-PFIZER INC-2011090270

PATIENT
  Sex: Female
  Weight: 66.667 kg

DRUGS (4)
  1. ZOLOFT [Suspect]
     Indication: MOOD SWINGS
     Dosage: 50 MG, 1X/DAY
     Route: 048
     Dates: start: 19930520
  2. ZOLOFT [Suspect]
     Indication: DEPRESSION
  3. TENORMIN [Concomitant]
     Dosage: UNK
  4. LISINOPRIL [Concomitant]
     Dosage: UNK

REACTIONS (1)
  - BEREAVEMENT [None]
